FAERS Safety Report 5591854-4 (Version None)
Quarter: 2008Q1

REPORT INFORMATION
  Report Type: 
  Country: None (occurrence: None)
  Receive Date: 20080115
  Receipt Date: 20080108
  Transmission Date: 20080703
  Serious: Yes (Hospitalization)
  Sender: FDA-Public Use
  Company Number: B0502628A

PATIENT
  Age: 35 Year
  Sex: Male

DRUGS (9)
  1. VALTREX [Suspect]
     Indication: HERPES SIMPLEX
     Dosage: 500MG TWICE PER DAY
     Route: 048
     Dates: start: 20040709, end: 20040715
  2. ACYCLOVIR [Suspect]
     Indication: HERPES SIMPLEX
     Route: 042
     Dates: start: 20040716, end: 20040716
  3. VOLTAREN [Concomitant]
  4. LANSOPRAZOLE [Concomitant]
  5. TEGRETOL [Concomitant]
  6. BACTRIM [Concomitant]
  7. PREDNISOLONE [Concomitant]
  8. NYSTATIN [Concomitant]
     Route: 048
  9. NEORAL [Concomitant]

REACTIONS (10)
  - BACTERIA URINE IDENTIFIED [None]
  - BLOOD CREATININE INCREASED [None]
  - C-REACTIVE PROTEIN INCREASED [None]
  - CONFUSIONAL STATE [None]
  - COTARD'S SYNDROME [None]
  - DELUSION [None]
  - DRUG TOXICITY [None]
  - HYPERTENSION [None]
  - ORAL PAIN [None]
  - THINKING ABNORMAL [None]
